FAERS Safety Report 14321142 (Version 1)
Quarter: 2017Q4

REPORT INFORMATION
  Report Type: Spontaneous
  Country: IT (occurrence: IT)
  Receive Date: 20171223
  Receipt Date: 20171223
  Transmission Date: 20180321
  Serious: Yes (Other)
  Sender: FDA-Public Use
  Company Number: IT-CIPLA LTD.-2017IT24568

PATIENT

DRUGS (2)
  1. PEMETREXED. [Suspect]
     Active Substance: PEMETREXED
     Indication: NON-SMALL CELL LUNG CANCER
     Dosage: 375 MG/M2, 75% OF THE STANDARD DOSE; EVERY 21 DAYS ; CYCLICAL
     Route: 065
     Dates: start: 2015
  2. CARBOPLATIN. [Suspect]
     Active Substance: CARBOPLATIN
     Indication: NON-SMALL CELL LUNG CANCER
     Dosage: AUC 4; EVERY 21 DAYS () ; CYCLICAL
     Route: 065
     Dates: start: 2015

REACTIONS (3)
  - Thrombocytopenia [Unknown]
  - Anaemia [Unknown]
  - Disease progression [Unknown]

NARRATIVE: CASE EVENT DATE: 2015
